FAERS Safety Report 12469278 (Version 1)
Quarter: 2016Q2

REPORT INFORMATION
  Report Type: Spontaneous
  Country: US (occurrence: US)
  Receive Date: 20160615
  Receipt Date: 20160615
  Transmission Date: 20160815
  Serious: No
  Sender: FDA-Public Use
  Company Number: US-ELI_LILLY_AND_COMPANY-US201605008993

PATIENT
  Age: 70 Year
  Sex: Female

DRUGS (4)
  1. TRULICITY [Suspect]
     Active Substance: DULAGLUTIDE
     Indication: TYPE 2 DIABETES MELLITUS
     Dosage: 1.5 MG, WEEKLY (1/W)
     Route: 065
     Dates: start: 201603, end: 201604
  2. TRULICITY [Suspect]
     Active Substance: DULAGLUTIDE
     Dosage: 1.5 MG, WEEKLY (1/W)
     Route: 065
     Dates: start: 201605, end: 20160515
  3. LANTUS [Concomitant]
     Active Substance: INSULIN GLARGINE
     Dosage: 60 U, UNKNOWN
     Route: 065
  4. METFORMIN [Concomitant]
     Active Substance: METFORMIN HYDROCHLORIDE
     Dosage: 1000 DF, BID
     Route: 065

REACTIONS (6)
  - Decreased appetite [Unknown]
  - Malaise [Recovering/Resolving]
  - Nausea [Unknown]
  - Influenza [Recovered/Resolved]
  - Vomiting [Recovered/Resolved]
  - Impaired gastric emptying [Unknown]

NARRATIVE: CASE EVENT DATE: 20160515
